FAERS Safety Report 4995403-0 (Version None)
Quarter: 2006Q2

REPORT INFORMATION
  Report Type: 
  Country: None (occurrence: None)
  Receive Date: 20060503
  Receipt Date: 20060417
  Transmission Date: 20061013
  Serious: Yes (Other)
  Sender: FDA-Public Use
  Company Number: US200604002792

PATIENT
  Age: 68 Year
  Sex: Female

DRUGS (3)
  1. HUMALOG [Suspect]
     Indication: DIABETES MELLITUS
     Dosage: AS  NEEDED
     Dates: start: 20040101
  2. INSULIN GLARGINE (INSULIN GLARGINE) [Concomitant]
  3. COUMADIN [Concomitant]

REACTIONS (2)
  - CARDIAC OPERATION [None]
  - INJECTION SITE BRUISING [None]
